FAERS Safety Report 6252839-8 (Version None)
Quarter: 2009Q2

REPORT INFORMATION
  Report Type: 
  Country: None (occurrence: None)
  Receive Date: 20090629
  Receipt Date: 20090616
  Transmission Date: 20091009
  Serious: No
  Sender: FDA-Public Use
  Company Number: 2009AP002303

PATIENT
  Age: 44 Year
  Sex: Female

DRUGS (3)
  1. CYCLOSPORINE [Suspect]
     Indication: IMMUNOSUPPRESSION
  2. SIROLIMUS [Suspect]
     Indication: IMMUNOSUPPRESSION
  3. AZATHIOPRINE [Concomitant]

REACTIONS (3)
  - CHRONIC ALLOGRAFT NEPHROPATHY [None]
  - DRUG TOXICITY [None]
  - TRANSPLANT REJECTION [None]
